FAERS Safety Report 23768072 (Version 1)
Quarter: 2024Q2

REPORT INFORMATION
  Report Type: Spontaneous
  Country: BE (occurrence: BE)
  Receive Date: 20240422
  Receipt Date: 20240422
  Transmission Date: 20240716
  Serious: Yes (Other)
  Sender: FDA-Public Use
  Company Number: BE-009507513-2404BEL008922

PATIENT
  Sex: Female

DRUGS (1)
  1. KEYTRUDA [Suspect]
     Active Substance: PEMBROLIZUMAB
     Indication: Triple negative breast cancer
     Dosage: 200 MILLIGRAM

REACTIONS (4)
  - Immune-mediated gastritis [Unknown]
  - Immune-mediated oesophagitis [Unknown]
  - Mucosal inflammation [Unknown]
  - Therapy partial responder [Unknown]
